FAERS Safety Report 25504491 (Version 4)
Quarter: 2025Q4

REPORT INFORMATION
  Report Type: Spontaneous
  Country: IN (occurrence: IN)
  Receive Date: 20250702
  Receipt Date: 20251001
  Transmission Date: 20260117
  Serious: Yes (Hospitalization, Other)
  Sender: PFIZER
  Company Number: IN-PFIZER INC-2019424670

PATIENT
  Age: 61 Year
  Sex: Male

DRUGS (6)
  1. SUTENT [Suspect]
     Active Substance: SUNITINIB MALATE
     Indication: Metastatic renal cell carcinoma
     Dosage: 50 MG, DAILY
     Route: 048
     Dates: start: 20170228
  2. SUTENT [Suspect]
     Active Substance: SUNITINIB MALATE
     Dosage: 25 MG, 1X/DAY
     Route: 048
     Dates: start: 201703
  3. SUTENT [Suspect]
     Active Substance: SUNITINIB MALATE
     Dosage: 12.5 MG, 3X/DAY
  4. SUTENT [Suspect]
     Active Substance: SUNITINIB MALATE
     Dosage: 25 MG, CYCLIC (OD, 1 HR BEFORE OR 2 HRS AFTER. 3 WEEKS ON AND ONE WEEK OFF)
     Route: 048
  5. SUTENT [Suspect]
     Active Substance: SUNITINIB MALATE
     Dosage: 25 MG, CYCLIC (OD FOR 3 WEEKS ON + 1 WEEK OFF)
     Route: 048
     Dates: end: 20240617
  6. SUTENT [Suspect]
     Active Substance: SUNITINIB MALATE
     Dosage: 25 MG, CYCLIC (FOR 3 WEEKS (21 DAYS) ON AND 1 WEEK OFF)
     Route: 048
     Dates: start: 20250124, end: 202503

REACTIONS (12)
  - Full blood count decreased [Unknown]
  - Haemoglobin decreased [Recovering/Resolving]
  - Hypotension [Unknown]
  - Autoimmune haemolytic anaemia [Unknown]
  - Mucosal inflammation [Unknown]
  - Palmar-plantar erythrodysaesthesia syndrome [Unknown]
  - Anaemia [Recovering/Resolving]
  - Pyrexia [Unknown]
  - Diarrhoea [Unknown]
  - Cough [Unknown]
  - Gastroenteritis [Unknown]
  - Off label use [Unknown]
